FAERS Safety Report 4319657-9 (Version None)
Quarter: 2004Q1

REPORT INFORMATION
  Report Type: 
  Country: None (occurrence: None)
  Receive Date: 20040319
  Receipt Date: 20011025
  Transmission Date: 20041129
  Serious: Yes (Disabling)
  Sender: FDA-Public Use
  Company Number: WAES 01104508

PATIENT
  Age: 49 Year
  Sex: Male
  Weight: 86 kg

DRUGS (3)
  1. VIOXX [Suspect]
     Indication: BACK DISORDER
     Route: 048
     Dates: start: 20010101
  2. VIOXX [Suspect]
     Indication: MUSCULOSKELETAL DISORDER
     Route: 048
     Dates: start: 20010101
  3. ZOCOR [Concomitant]

REACTIONS (14)
  - ASTHENIA [None]
  - ASTHMA [None]
  - BACK PAIN [None]
  - BLOOD PRESSURE FLUCTUATION [None]
  - CARDIOVASCULAR DISORDER [None]
  - CHRONIC OBSTRUCTIVE AIRWAYS DISEASE [None]
  - EMOTIONAL DISTRESS [None]
  - HEADACHE [None]
  - INJURY [None]
  - MUSCLE ATROPHY [None]
  - OEDEMA [None]
  - PAIN [None]
  - RENAL FAILURE [None]
  - SOMNOLENCE [None]
